FAERS Safety Report 6941977-X (Version None)
Quarter: 2010Q3

REPORT INFORMATION
  Report Type: 
  Country: None (occurrence: None)
  Receive Date: 20100826
  Receipt Date: 20100812
  Transmission Date: 20110219
  Serious: Yes (Hospitalization)
  Sender: FDA-Public Use
  Company Number: PHHY2010CH40670

PATIENT
  Age: 68 Year
  Sex: Male

DRUGS (8)
  1. AFINITOR [Suspect]
     Indication: CARCINOID SYNDROME
     Dosage: 1 DF, QD
     Route: 048
     Dates: start: 20100101, end: 20100301
  2. NOVALGIN [Suspect]
     Dosage: UNK
     Route: 048
     Dates: end: 20100319
  3. NITRODERM [Concomitant]
     Dosage: DAILY DOSE
     Route: 062
  4. AMLODIPINE [Concomitant]
     Dosage: DAILY DOSE
  5. NEXIUM [Concomitant]
     Dosage: DAILY DOSE
  6. NOZINAN [Concomitant]
     Dosage: DAILY DOSE
  7. LUDIOMIL [Concomitant]
     Dosage: DAILY DOSE
  8. LORAZEPAM [Concomitant]
     Dosage: DAILY DOSE

REACTIONS (7)
  - DEHYDRATION [None]
  - GENERAL PHYSICAL HEALTH DETERIORATION [None]
  - HYPERTENSION [None]
  - OEDEMA [None]
  - RENAL FAILURE CHRONIC [None]
  - TUBULOINTERSTITIAL NEPHRITIS [None]
  - URINE OUTPUT DECREASED [None]
